FAERS Safety Report 4626123-X (Version None)
Quarter: 2005Q1

REPORT INFORMATION
  Report Type: 
  Country: None (occurrence: None)
  Receive Date: 20050330
  Receipt Date: 20050311
  Transmission Date: 20050727
  Serious: Yes (Other)
  Sender: FDA-Public Use
  Company Number: USA050393157

PATIENT
  Age: 51 Year
  Sex: Female
  Weight: 59 kg

DRUGS (2)
  1. INSULIN-PORK PROTAMINE ZINC INSULIN (INSULIN, ANIMA [Suspect]
     Indication: DIABETES MELLITUS
     Dates: start: 19450101, end: 19920101
  2. HUMULIN N [Suspect]
     Indication: DIABETES MELLITUS
     Dosage: 30 U/ 1 IN THE MORNING
     Dates: start: 19920101

REACTIONS (11)
  - BALANCE DISORDER [None]
  - BLOOD GLUCOSE FLUCTUATION [None]
  - BURSITIS [None]
  - CONFUSIONAL STATE [None]
  - FALL [None]
  - FEMUR FRACTURE [None]
  - GLYCOSYLATED HAEMOGLOBIN INCREASED [None]
  - LOSS OF CONSCIOUSNESS [None]
  - LOWER LIMB DEFORMITY [None]
  - MUSCLE DISORDER [None]
  - MYOCARDIAL INFARCTION [None]
